FAERS Safety Report 9656800 (Version 1)
Quarter: 2013Q4

REPORT INFORMATION
  Report Type: Spontaneous
  Country: GB (occurrence: None)
  Receive Date: 20131028
  Receipt Date: 20131028
  Transmission Date: 20140711
  Serious: Yes (Life-Threatening, Hospitalization)
  Sender: FDA-Public Use
  Company Number: AUR-APL-2013-08808

PATIENT
  Age: 75 Year
  Sex: Female
  Weight: 50.8 kg

DRUGS (23)
  1. OLANZAPINE [Suspect]
     Indication: PRODUCT USED FOR UNKNOWN INDICATION
     Route: 048
  2. ACICLOVIR (ACICLOVIR) [Concomitant]
  3. ADCAL D3 (LEKOVIT CA) [Concomitant]
  4. ALLOPURINOL [Concomitant]
  5. CODEINE (CODEINE) [Concomitant]
  6. CO-TRIMOXAZOLE (CO-TRIMOXAZOLE) [Concomitant]
  7. DALTEPARIN (DALTEPARIN) [Concomitant]
  8. DIAZEPAM (DIAZEPAM) [Concomitant]
  9. FILGRASTIM (FILGRASTIM) [Concomitant]
  10. FOLIC ACID (FOLIC ACID) [Concomitant]
  11. INFLUENZA VIRUS (INFLUENZA VACCINE) [Concomitant]
  12. LOPERAMIDE (LOPERMIDE) [Concomitant]
  13. METFORMIN (METFORMN) [Concomitant]
  14. METRONIDAZOLE (METRONIDAZOLE) [Concomitant]
  15. MIRTAZAPINE (MITRAZAPINE) [Concomitant]
  16. NITROFURANTOIN [Concomitant]
  17. ONDANSETRON (ONDANSETRON) [Concomitant]
  18. PARACETAMOL (PARACETAMOL) [Concomitant]
  19. RANITIDINE (RANITIDINE) [Suspect]
  20. SANDO K (POASSIUM-SANDOZ) [Concomitant]
  21. SIMVASTATIN (SIMVASTATIN) [Concomitant]
  22. TRAZOCIN (PIP/TAZO) [Concomitant]
  23. TRIMETHOPRIM (TRIMETHOPRIM) [Concomitant]

REACTIONS (1)
  - Neutropenic sepsis [None]
